FAERS Safety Report 5743471-0 (Version None)
Quarter: 2008Q2

REPORT INFORMATION
  Report Type: 
  Country: None (occurrence: None)
  Receive Date: 20080519
  Receipt Date: 20080519
  Transmission Date: 20081010
  Serious: Yes (Disabling)
  Sender: FDA-Public Use
  Company Number: None

PATIENT
  Age: 37 Year
  Sex: Male
  Weight: 74.8435 kg

DRUGS (1)
  1. PRO HEALTH MOUTHWASH -BLUE- CREST [Suspect]
     Indication: BREATH ODOUR
     Dosage: HALF OF BOTTLE TOP TWICE DAILY TOP
     Dates: start: 20080402, end: 20080514

REACTIONS (2)
  - PHARMACEUTICAL PRODUCT COMPLAINT [None]
  - TOOTH DISCOLOURATION [None]
